FAERS Safety Report 6045207-5 (Version None)
Quarter: 2009Q1

REPORT INFORMATION
  Report Type: 
  Country: None (occurrence: None)
  Receive Date: 20090121
  Receipt Date: 20090113
  Transmission Date: 20090719
  Serious: Yes (Death)
  Sender: FDA-Public Use
  Company Number: US-ROCHE-604308

PATIENT
  Sex: Male

DRUGS (1)
  1. CAPECITABINE [Suspect]
     Indication: OESOPHAGEAL CANCER METASTATIC
     Route: 065
     Dates: start: 20080905, end: 20081106

REACTIONS (1)
  - OESOPHAGEAL CANCER METASTATIC [None]
